FAERS Safety Report 6177533-3 (Version None)
Quarter: 2009Q2

REPORT INFORMATION
  Report Type: 
  Country: None (occurrence: None)
  Receive Date: 20090504
  Receipt Date: 20090122
  Transmission Date: 20091009
  Serious: Yes (Hospitalization)
  Sender: FDA-Public Use
  Company Number: BE-PFIZER INC-2009160470

PATIENT

DRUGS (13)
  1. BLINDED *PLACEBO [Suspect]
  2. BLINDED EPLERENONE [Suspect]
  3. INSULINE (INSULATARD) [Concomitant]
  4. PERINDOPRIL ARGININE (COVERSYL) [Concomitant]
  5. SIMVASTATINE (ZOCOR) [Concomitant]
  6. AMIODARONHYDROCHLORIDE (CORDARONE) [Concomitant]
  7. CITALOPRAM HYDROBROMIDE [Concomitant]
  8. BISOPROLOLFUMARAAT (EMCONCOR) [Concomitant]
  9. ACETYL SALICYLIC ACID (ASAFLOW) [Concomitant]
  10. MOLSIDOMINE (CORUNO) [Concomitant]
  11. METFORMINEHYDROCHLORIDE (GLUCOPHAGE) [Concomitant]
  12. GLICLAZIDE (UNI-DIAMICRON) [Concomitant]
  13. LORMETAZEPAM (LORAMET) [Concomitant]

REACTIONS (1)
  - LOCALISED INFECTION [None]
